FAERS Safety Report 15076464 (Version 1)
Quarter: 2018Q2

REPORT INFORMATION
  Report Type: Spontaneous
  Country: RU (occurrence: RU)
  Receive Date: 20180627
  Receipt Date: 20180627
  Transmission Date: 20180711
  Serious: Yes (Other)
  Sender: FDA-Public Use
  Company Number: RU-JNJFOC-20180631808

PATIENT
  Sex: Female

DRUGS (2)
  1. CONCOR [Concomitant]
     Active Substance: BISOPROLOL FUMARATE
     Route: 065
  2. XARELTO [Suspect]
     Active Substance: RIVAROXABAN
     Indication: PRODUCT USED FOR UNKNOWN INDICATION
     Route: 048

REACTIONS (9)
  - Muscle spasticity [Unknown]
  - Hypertension [Unknown]
  - Pain [Unknown]
  - Hypotension [Unknown]
  - Muscle twitching [Unknown]
  - Myalgia [Unknown]
  - Oedema peripheral [Unknown]
  - Paraesthesia [Unknown]
  - Heart rate increased [Unknown]
